FAERS Safety Report 5825176-0 (Version None)
Quarter: 2008Q3

REPORT INFORMATION
  Report Type: 
  Country: None (occurrence: None)
  Receive Date: 20080729
  Receipt Date: 20080717
  Transmission Date: 20090109
  Serious: Yes (Other)
  Sender: FDA-Public Use
  Company Number: PHHY2008BR14478

PATIENT
  Sex: Female
  Weight: 92 kg

DRUGS (6)
  1. ZOLEDRONIC ACID [Suspect]
     Indication: OSTEOPOROSIS
     Dosage: 1 DF, ONCE/SINGLE
     Route: 042
     Dates: start: 20080626
  2. BENERVA [Concomitant]
     Dosage: UNK
  3. LOSARTAN POTASSIUM [Concomitant]
  4. INSULINA P.Z.PURIFICADA [Concomitant]
  5. GALVUS [Concomitant]
  6. CALCIUM SANDOZ [Concomitant]

REACTIONS (1)
  - HYPOTENSION [None]
